FAERS Safety Report 8564401-2 (Version None)
Quarter: 2012Q3

REPORT INFORMATION
  Report Type: 
  Country: None (occurrence: None)
  Receive Date: 20120723
  Receipt Date: 20120712
  Transmission Date: 20120928
  Serious: Yes (Death, Hospitalization, Other)
  Sender: FDA-Public Use
  Company Number: ADR-2012-01307

PATIENT
  Sex: Male

DRUGS (3)
  1. LIORESAL [Suspect]
     Indication: HEAD INJURY
     Dosage: 938.7 MCG/DAY
  2. LIORESAL [Suspect]
     Indication: BRAIN INJURY
     Dosage: 938.7 MCG/DAY
  3. LIORESAL [Suspect]
     Indication: MUSCLE SPASTICITY
     Dosage: 938.7 MCG/DAY

REACTIONS (1)
  - CEREBROVASCULAR ACCIDENT [None]
